FAERS Safety Report 8351826-3 (Version None)
Quarter: 2012Q2

REPORT INFORMATION
  Report Type: 
  Country: None (occurrence: None)
  Receive Date: 20120511
  Receipt Date: 20120504
  Transmission Date: 20120825
  Serious: No
  Sender: FDA-Public Use
  Company Number: US-BIOGENIDEC-2012BI016192

PATIENT
  Age: 35 Year
  Sex: Male

DRUGS (3)
  1. FLOMAX [Concomitant]
     Indication: POLLAKIURIA
  2. TYSABRI [Suspect]
     Indication: MULTIPLE SCLEROSIS
     Route: 042
     Dates: start: 20100809
  3. FLOMAX [Concomitant]
     Indication: URINARY INCONTINENCE

REACTIONS (9)
  - POLLAKIURIA [None]
  - VISION BLURRED [None]
  - MUSCLE TWITCHING [None]
  - URINARY INCONTINENCE [None]
  - DIZZINESS [None]
  - DRUG EFFECT DECREASED [None]
  - GAIT DISTURBANCE [None]
  - BLEPHAROSPASM [None]
  - SWELLING FACE [None]
